FAERS Safety Report 24968687 (Version 1)
Quarter: 2025Q1

REPORT INFORMATION
  Report Type: Spontaneous
  Country: LK (occurrence: LK)
  Receive Date: 20250214
  Receipt Date: 20250214
  Transmission Date: 20250408
  Serious: Yes (Death, Other)
  Sender: ZYDUS PHARM
  Company Number: LK-CADILA HEALTHCARE LIMITED-LK-ZYDUS-119276

PATIENT

DRUGS (3)
  1. OLANZAPINE [Suspect]
     Active Substance: OLANZAPINE
     Indication: Product used for unknown indication
     Route: 065
  2. HALOPERIDOL [Suspect]
     Active Substance: HALOPERIDOL
     Indication: Product used for unknown indication
     Route: 065
  3. TRIHEXYPHENIDYL [Suspect]
     Active Substance: TRIHEXYPHENIDYL
     Indication: Product used for unknown indication
     Route: 065

REACTIONS (5)
  - Pulmonary haemorrhage [Fatal]
  - Pulmonary oedema [Fatal]
  - Renal failure [Fatal]
  - Renal tubular necrosis [Fatal]
  - Overdose [Fatal]
